FAERS Safety Report 19819470 (Version 3)
Quarter: 2022Q1

REPORT INFORMATION
  Report Type: Report from Study
  Country: US (occurrence: US)
  Receive Date: 20210913
  Receipt Date: 20220118
  Transmission Date: 20220423
  Serious: No
  Sender: FDA-Public Use
  Company Number: US-NOVARTISTESTPH-NVSC2021US206165

PATIENT
  Sex: Male

DRUGS (1)
  1. ZARXIO [Suspect]
     Active Substance: FILGRASTIM-SNDZ
     Indication: Product used for unknown indication
     Dosage: 0.5 ML (EVERY DAY FOR 3 DAYS EVERY 30 DAYS) (BENEATH THE SKIN, USUALLY VIA INJECTION)
     Route: 058

REACTIONS (6)
  - Hypoacusis [Unknown]
  - Full blood count decreased [Unknown]
  - Hernia [Unknown]
  - Weight increased [Unknown]
  - General physical health deterioration [Unknown]
  - Oedema peripheral [Unknown]
